FAERS Safety Report 25894843 (Version 1)
Quarter: 2025Q4

REPORT INFORMATION
  Report Type: Spontaneous
  Country: IR (occurrence: IR)
  Receive Date: 20251008
  Receipt Date: 20251008
  Transmission Date: 20260117
  Serious: Yes (Death, Other)
  Sender: GLAND PHARMA LTD
  Company Number: IR-GLANDPHARMA-IR-2025GLNLIT01967

PATIENT
  Age: 22 Year
  Sex: Female

DRUGS (4)
  1. CISPLATIN [Suspect]
     Active Substance: CISPLATIN
     Indication: Ovarian germ cell tumour mixed
     Route: 042
  2. BLEOMYCIN [Suspect]
     Active Substance: BLEOMYCIN SULFATE
     Indication: Ovarian germ cell tumour mixed
     Route: 042
  3. ETOPOSIDE [Suspect]
     Active Substance: ETOPOSIDE
     Indication: Ovarian germ cell tumour mixed
     Route: 042
  4. HYDROCORTISONE [Concomitant]
     Active Substance: HYDROCORTISONE
     Indication: Product used for unknown indication
     Route: 042

REACTIONS (1)
  - Acute myeloid leukaemia [Fatal]
